FAERS Safety Report 6431826-0 (Version None)
Quarter: 2009Q4

REPORT INFORMATION
  Report Type: 
  Country: None (occurrence: None)
  Receive Date: 20091104
  Receipt Date: 20091021
  Transmission Date: 20100525
  Serious: Yes (Hospitalization)
  Sender: FDA-Public Use
  Company Number: 007586

PATIENT
  Age: 75 Year
  Sex: Male
  Weight: 51.5 kg

DRUGS (1)
  1. PLETAL [Suspect]
     Indication: ISCHAEMIC HEART DISEASE PROPHYLAXIS
     Dosage: 100 MG, BID, ORAL
     Route: 048
     Dates: start: 20050709, end: 20050722

REACTIONS (1)
  - AGRANULOCYTOSIS [None]
